FAERS Safety Report 6613206-8 (Version None)
Quarter: 2010Q1

REPORT INFORMATION
  Report Type: 
  Country: None (occurrence: None)
  Receive Date: 20100225
  Receipt Date: 20100203
  Transmission Date: 20100710
  Serious: Yes (Hospitalization)
  Sender: FDA-Public Use
  Company Number: 2010NI0044

PATIENT
  Age: 84 Year
  Sex: Female
  Weight: 65 kg

DRUGS (11)
  1. NITROLINGUAL PUMPSPRAY [Suspect]
     Indication: DYSPNOEA
     Dosage: 0.4 MG 1/1 DAY, AS NEEDED
     Dates: start: 20091104, end: 20091104
  2. ACETYLSALCYLIC ACID [Concomitant]
  3. RAMIPRIL [Concomitant]
  4. AMLODIPINE [Concomitant]
  5. PANTOPRAZOLE [Concomitant]
  6. MIRTAZAPINE [Concomitant]
  7. CANDESARTAN [Concomitant]
  8. NOVAMIN [Concomitant]
  9. PALLADONE [Concomitant]
  10. BIFITERAL SIRUP [Concomitant]
  11. INSULIN ACTRAPID [Concomitant]

REACTIONS (3)
  - HYPERSENSITIVITY [None]
  - STRIDOR [None]
  - SWOLLEN TONGUE [None]
